FAERS Safety Report 4678169-3 (Version None)
Quarter: 2005Q2

REPORT INFORMATION
  Report Type: 
  Country: None (occurrence: None)
  Receive Date: 20050601
  Receipt Date: 20050527
  Transmission Date: 20051028
  Serious: Yes (Death)
  Sender: FDA-Public Use
  Company Number: 200511792FR

PATIENT
  Age: 75 Year
  Sex: Female
  Weight: 57 kg

DRUGS (16)
  1. TAXOTERE [Suspect]
     Indication: BREAST CANCER METASTATIC
     Route: 042
     Dates: start: 20050418, end: 20050418
  2. DURAGESIC-100 [Suspect]
     Dates: start: 20050418, end: 20050418
  3. HERCEPTINE [Suspect]
     Indication: BREAST CANCER METASTATIC
     Route: 042
     Dates: start: 20050418, end: 20050418
  4. AZANTAC [Concomitant]
  5. LASILIX [Concomitant]
  6. POLARAMINE [Concomitant]
  7. SOLU-MEDROL [Concomitant]
  8. DUPHALAC [Concomitant]
  9. STILNOX [Concomitant]
  10. ATARAX [Concomitant]
  11. ZOLOFT [Concomitant]
  12. MOPRAL [Concomitant]
  13. DIFFU K [Concomitant]
  14. GELOX [Concomitant]
  15. CORTANCYL [Concomitant]
  16. DEBRIDAT [Concomitant]

REACTIONS (4)
  - ABDOMINAL PAIN [None]
  - ABDOMINAL PAIN UPPER [None]
  - DYSPNOEA [None]
  - TACHYCARDIA [None]
